FAERS Safety Report 15234652 (Version 1)
Quarter: 2018Q3

REPORT INFORMATION
  Report Type: Report from Study
  Country: KR (occurrence: KR)
  Receive Date: 20180803
  Receipt Date: 20180803
  Transmission Date: 20181010
  Serious: Yes (Other)
  Sender: FDA-Public Use
  Company Number: KR-ROCHE-2162082

PATIENT

DRUGS (6)
  1. CHLORPHENIRAMINE. [Concomitant]
     Active Substance: CHLORPHENIRAMINE
     Dosage: DOSE: 2?4 MG
     Route: 048
  2. METHOTREXATE. [Concomitant]
     Active Substance: METHOTREXATE
     Dosage: DOSE: 7.5?25 MG ORALLY OR PARENTERALLY, WEEKLY
     Route: 065
  3. FOLIC ACID. [Concomitant]
     Active Substance: FOLIC ACID
     Dosage: DOSE: }/=5 MG ORALLY, WEEKLY
     Route: 065
  4. RITUXIMAB. [Suspect]
     Active Substance: RITUXIMAB
     Indication: RHEUMATOID ARTHRITIS
     Route: 042
  5. METHYLPREDNISOLONE. [Concomitant]
     Active Substance: METHYLPREDNISOLONE
     Route: 042
  6. ACETAMINOPHEN. [Concomitant]
     Active Substance: ACETAMINOPHEN
     Dosage: DOSE: 500?1000 MG
     Route: 048

REACTIONS (10)
  - Cellulitis [Unknown]
  - Localised infection [Unknown]
  - Vertebrobasilar insufficiency [Unknown]
  - Pneumonia [Unknown]
  - Intestinal obstruction [Unknown]
  - Arthralgia [Unknown]
  - Injury [Unknown]
  - Lower respiratory tract infection [Unknown]
  - Fracture [Unknown]
  - Pancytopenia [Unknown]
